FAERS Safety Report 18007641 (Version 2)
Quarter: 2020Q3

REPORT INFORMATION
  Report Type: Spontaneous
  Country: ES (occurrence: ES)
  Receive Date: 20200710
  Receipt Date: 20200724
  Transmission Date: 20201103
  Serious: Yes (Death, Hospitalization, Other)
  Sender: FDA-Public Use
  Company Number: ES-MYLANLABS-2020M1061825

PATIENT
  Age: 73 Year
  Sex: Male

DRUGS (7)
  1. ENVARSUS XR [Interacting]
     Active Substance: TACROLIMUS
     Dosage: UNK
  2. PREDNISONE. [Interacting]
     Active Substance: PREDNISONE
     Indication: IMMUNOSUPPRESSION
     Dosage: UNK
  3. ENVARSUS XR [Interacting]
     Active Substance: TACROLIMUS
     Indication: IMMUNOSUPPRESSION
     Dosage: REDUCE DOSE
     Dates: start: 202003
  4. MYCOPHENOLIC ACID. [Suspect]
     Active Substance: MYCOPHENOLIC ACID
     Indication: IMMUNOSUPPRESSION
     Dosage: UNK
     Route: 065
  5. LOPINAVIR + RITONAVIR [Interacting]
     Active Substance: LOPINAVIR\RITONAVIR
     Indication: COVID-19
     Dosage: 2 MILLIGRAM, QD (200/100 MG)
     Route: 048
     Dates: start: 202003, end: 202003
  6. HYDROXYCHLOROQUINE [Concomitant]
     Active Substance: HYDROXYCHLOROQUINE
     Indication: COVID-19
     Dosage: 800 MILLIGRAM, QD (FIRST 24 HOURS)
     Route: 048
     Dates: start: 202003, end: 202003
  7. MYCOPHENOLIC ACID. [Interacting]
     Active Substance: MYCOPHENOLIC ACID
     Indication: PROPHYLAXIS AGAINST TRANSPLANT REJECTION

REACTIONS (7)
  - Acute respiratory distress syndrome [Fatal]
  - Off label use [Unknown]
  - Shock [Fatal]
  - Myocarditis [Unknown]
  - COVID-19 [Fatal]
  - Drug interaction [Unknown]
  - Drug level abnormal [Unknown]

NARRATIVE: CASE EVENT DATE: 202003
